FAERS Safety Report 10451571 (Version 1)
Quarter: 2014Q3

REPORT INFORMATION
  Report Type: Spontaneous
  Country: US (occurrence: US)
  Receive Date: 20140914
  Receipt Date: 20140914
  Transmission Date: 20150326
  Serious: No
  Sender: FDA-Public Use
  Company Number: US-009507513-1407USA012621

PATIENT
  Age: 20 Year
  Sex: Female
  Weight: 122.45 kg

DRUGS (1)
  1. IMPLANON [Suspect]
     Active Substance: ETONOGESTREL
     Dosage: ONE ROD, EVERY THREE YEARS
     Route: 059
     Dates: start: 20120712, end: 20140723

REACTIONS (7)
  - Device dislocation [Recovered/Resolved]
  - Implant site fibrosis [Recovering/Resolving]
  - Weight increased [Recovering/Resolving]
  - Implant site pain [Recovering/Resolving]
  - Device difficult to use [Recovered/Resolved]
  - Device breakage [Recovered/Resolved]
  - Medical device complication [Recovered/Resolved]

NARRATIVE: CASE EVENT DATE: 201210
